FAERS Safety Report 8522840-X (Version None)
Quarter: 2012Q3

REPORT INFORMATION
  Report Type: 
  Country: None (occurrence: None)
  Receive Date: 20120720
  Receipt Date: 20120712
  Transmission Date: 20120928
  Serious: Yes (Death)
  Sender: FDA-Public Use
  Company Number: US-BRISTOL-MYERS SQUIBB COMPANY-16762965

PATIENT

DRUGS (1)
  1. YERVOY [Suspect]
     Dosage: 1 DF:50MG/10ML;LOT#918359,EXP:MAY14;1DF:200MG/40ML;LOT#918121,EXP:APR14

REACTIONS (1)
  - DEATH [None]
